FAERS Safety Report 7410853-0 (Version None)
Quarter: 2011Q2

REPORT INFORMATION
  Report Type: 
  Country: None (occurrence: None)
  Receive Date: 20110413
  Receipt Date: 20110408
  Transmission Date: 20111010
  Serious: No
  Sender: FDA-Public Use
  Company Number: US-PFIZER INC-2011078411

PATIENT
  Sex: Female
  Weight: 68.027 kg

DRUGS (17)
  1. KLONOPIN [Concomitant]
     Indication: INSOMNIA
     Dosage: 1.5 MG, UNK
  2. FLEXERIL [Concomitant]
     Dosage: UNK
  3. ASCORBIC ACID [Concomitant]
     Dosage: 1000 MG, DAILY
  4. TRAZODONE [Concomitant]
     Indication: SLEEP DISORDER
     Dosage: 50 MG, UNK
  5. TOVIAZ [Suspect]
     Indication: MICTURITION URGENCY
  6. ACETYLSALICYLIC ACID [Concomitant]
     Dosage: 81 MG, UNK
  7. MULTI-VITAMINS [Concomitant]
     Dosage: UNK
  8. TOVIAZ [Suspect]
     Indication: URINARY RETENTION
     Dosage: 4 MG, UNK
     Dates: start: 20110301
  9. TOVIAZ [Suspect]
     Indication: ENURESIS
  10. PREMARIN [Concomitant]
     Dosage: 625 MG, UNK
  11. CLARINEX [Concomitant]
     Dosage: 5 MG, UNK
  12. SKELAXIN [Concomitant]
     Dosage: 800 MG, DAILY
  13. MINERAL TAB [Concomitant]
     Dosage: UNK
  14. MOBIC [Concomitant]
     Indication: BURSITIS
     Dosage: 7.5 MG, DAILY
  15. MAGNESIUM [Concomitant]
     Dosage: UNK
  16. CALCIUM WITH VITAMIN D [Concomitant]
     Dosage: UNK
  17. MINOCYCLINE [Concomitant]
     Indication: ACNE
     Dosage: 50 MG, UNK

REACTIONS (1)
  - RASH [None]
